FAERS Safety Report 7626616-7 (Version None)
Quarter: 2011Q3

REPORT INFORMATION
  Report Type: 
  Country: None (occurrence: None)
  Receive Date: 20110721
  Receipt Date: 20110509
  Transmission Date: 20111222
  Serious: No
  Sender: FDA-Public Use
  Company Number: US-NOVEN-11US002425

PATIENT
  Sex: Female

DRUGS (7)
  1. FLEXERIL [Concomitant]
     Indication: BACK PAIN
     Dosage: UNK
     Route: 048
  2. XANAX [Concomitant]
     Indication: PRODUCT USED FOR UNKNOWN INDICATION
     Dosage: UNK
     Route: 048
  3. KLONOPIN [Concomitant]
     Indication: PRODUCT USED FOR UNKNOWN INDICATION
     Dosage: UNK
     Route: 048
  4. LYRICA [Concomitant]
     Indication: FIBROMYALGIA
     Dosage: UNK
     Route: 048
  5. FENTANYL [Suspect]
     Dosage: 25 UG, Q48H
     Route: 062
     Dates: end: 20110426
  6. FENTANYL [Suspect]
     Indication: BACK PAIN
     Dosage: 50 UG, Q48H
     Route: 062
     Dates: start: 20110426, end: 20110501
  7. AMBIEN [Concomitant]
     Indication: POOR QUALITY SLEEP
     Dosage: UNK
     Route: 048

REACTIONS (8)
  - INADEQUATE ANALGESIA [None]
  - DIPLOPIA [None]
  - DRUG ADMINISTRATION ERROR [None]
  - PRODUCT QUALITY ISSUE [None]
  - THINKING ABNORMAL [None]
  - JUDGEMENT IMPAIRED [None]
  - HALLUCINATION [None]
  - OVERDOSE [None]
